FAERS Safety Report 13819426 (Version 2)
Quarter: 2018Q1

REPORT INFORMATION
  Report Type: Report from Study
  Country: US (occurrence: US)
  Receive Date: 20170731
  Receipt Date: 20180201
  Transmission Date: 20180508
  Serious: No
  Sender: FDA-Public Use
  Company Number: US-EXELIXIS-CABO-17008638

PATIENT
  Age: 57 Year
  Sex: Female

DRUGS (17)
  1. PREDNISONE. [Concomitant]
     Active Substance: PREDNISONE
  2. LIPITOR [Concomitant]
     Active Substance: ATORVASTATIN CALCIUM
  3. CARVEDILOL. [Concomitant]
     Active Substance: CARVEDILOL
  4. CABOMETYX [Suspect]
     Active Substance: CABOZANTINIB S-MALATE
     Dosage: 40 MG, QD
     Route: 048
     Dates: start: 20170425, end: 20170718
  5. LEVOTHYROXINE. [Concomitant]
     Active Substance: LEVOTHYROXINE
  6. NIFEDIPINE. [Concomitant]
     Active Substance: NIFEDIPINE
  7. TRIAMTERENE. [Concomitant]
     Active Substance: TRIAMTERENE
  8. ESOMEPRAZOLE MAGNESIUM. [Concomitant]
     Active Substance: ESOMEPRAZOLE MAGNESIUM
  9. GLIPIZIDE. [Concomitant]
     Active Substance: GLIPIZIDE
  10. TRAJENTA [Concomitant]
     Active Substance: LINAGLIPTIN
  11. EMLA [Concomitant]
     Active Substance: LIDOCAINE\PRILOCAINE
  12. NORCO [Concomitant]
     Active Substance: ACETAMINOPHEN\HYDROCODONE BITARTRATE
  13. CABOMETYX [Suspect]
     Active Substance: CABOZANTINIB S-MALATE
     Dosage: 20 MG, QD
     Route: 048
     Dates: start: 201708
  14. PROCHLORPERAZINE. [Concomitant]
     Active Substance: PROCHLORPERAZINE
  15. CABOMETYX [Suspect]
     Active Substance: CABOZANTINIB S-MALATE
     Indication: RENAL CANCER
     Dosage: 60 MG, QD
     Route: 048
     Dates: start: 20170118
  16. NOVOLOG [Concomitant]
     Active Substance: INSULIN ASPART
  17. METRONIDAZOL [Concomitant]
     Active Substance: METRONIDAZOLE

REACTIONS (11)
  - Glossodynia [Unknown]
  - Burning sensation [Unknown]
  - Nausea [Unknown]
  - Pruritus [Unknown]
  - Aphthous ulcer [Not Recovered/Not Resolved]
  - Diarrhoea [Unknown]
  - Gingivitis [Unknown]
  - Stomatitis [Recovered/Resolved]
  - Blister [Unknown]
  - Loose tooth [Not Recovered/Not Resolved]
  - Laceration [Unknown]

NARRATIVE: CASE EVENT DATE: 201701
